FAERS Safety Report 10803180 (Version 3)
Quarter: 2015Q2

REPORT INFORMATION
  Report Type: Spontaneous
  Country: FR (occurrence: FR)
  Receive Date: 20150217
  Receipt Date: 20150402
  Transmission Date: 20150821
  Serious: Yes (Hospitalization)
  Sender: FDA-Public Use
  Company Number: FR-BIAL, PORTELA + CA S.A.-BIAL-02815

PATIENT
  Age: 77 Year
  Sex: Male

DRUGS (8)
  1. PREVISCAN (FLUINDIONE) [Concomitant]
     Active Substance: FLUINDIONE
     Dosage: 20 MG, 1/2 CAPSULE DAILY
  2. VIMPAT [Concomitant]
     Active Substance: LACOSAMIDE
     Dosage: DECREASED TO 100 MG, THEN 50 MG
     Dates: start: 20141219
  3. ZEBINIX (ESLICARBAZEPINE ACETATE) [Interacting]
     Active Substance: ESLICARBAZEPINE ACETATE
     Indication: PRODUCT USED FOR UNKNOWN INDICATION
     Dosage: 400 MG, 1X / DAY
     Route: 048
     Dates: start: 201412, end: 20141225
  4. ALTEISDUO [Suspect]
     Active Substance: HYDROCHLOROTHIAZIDE\OLMESARTAN MEDOXOMIL
     Indication: PRODUCT USED FOR UNKNOWN INDICATION
     Dosage: 1 DF, 1X / DAY
     Route: 048
     Dates: start: 201406
  5. VIMPAT [Concomitant]
     Active Substance: LACOSAMIDE
  6. NEURONTIN [Concomitant]
     Active Substance: GABAPENTIN
     Dosage: 800 MG, 3X / DAY
     Dates: start: 20120101
  7. ZEBINIX (ESLICARBAZEPINE ACETATE) [Suspect]
     Active Substance: ESLICARBAZEPINE ACETATE
     Indication: PRODUCT USED FOR UNKNOWN INDICATION
     Dosage: 400 MG 1 DAY/2
     Route: 048
     Dates: start: 20141119, end: 201412
  8. VIMPAT [Concomitant]
     Active Substance: LACOSAMIDE
     Dosage: PROGRESSIVE INCREASE TO 200 MG
     Dates: start: 20140908

REACTIONS (4)
  - Hyponatraemia [Recovered/Resolved]
  - Drug interaction [Recovered/Resolved]
  - Seizure [Recovered/Resolved]
  - Confusional state [Recovered/Resolved]

NARRATIVE: CASE EVENT DATE: 20141119
